FAERS Safety Report 15983342 (Version 1)
Quarter: 2019Q1

REPORT INFORMATION
  Report Type: Other
  Country: FR (occurrence: FR)
  Receive Date: 20190220
  Receipt Date: 20190220
  Transmission Date: 20190418
  Serious: Yes (Hospitalization)
  Sender: FDA-Public Use
  Company Number: FR-DENTSPLY-2019SCDP000093

PATIENT
  Age: 18 Year
  Sex: Male
  Weight: 65 kg

DRUGS (2)
  1. MEPIVACAINE HCL [Suspect]
     Active Substance: MEPIVACAINE\MEPIVACAINE HYDROCHLORIDE
     Indication: LOCAL ANAESTHESIA
     Dosage: 30 ML, TOTAL FORM STRENGTH: 2 PERCENT 0.4 G/ 20 ML, SOLUTION FOR INJECTION
     Route: 030
     Dates: start: 20170816, end: 20170816
  2. MIDAZOLAM [Suspect]
     Active Substance: MIDAZOLAM HYDROCHLORIDE
     Indication: LOCAL ANAESTHESIA
     Dosage: 2 MG, TOTAL,FORM STRENGTH: 1MG/ML SOLUTION FOR INJECTION
     Route: 030
     Dates: start: 20170816, end: 20170816

REACTIONS (3)
  - Vertigo [Recovered/Resolved]
  - Dysarthria [Recovered/Resolved]
  - Amnestic disorder [Recovered/Resolved]

NARRATIVE: CASE EVENT DATE: 20170816
